FAERS Safety Report 9705176 (Version 2)
Quarter: 2014Q1

REPORT INFORMATION
  Report Type: Spontaneous
  Country: DE (occurrence: DE)
  Receive Date: 20131122
  Receipt Date: 20140320
  Transmission Date: 20141002
  Serious: Yes (Congenital Anomaly)
  Sender: FDA-Public Use
  Company Number: DE-JNJFOC-20131109880

PATIENT
  Age: 0 Day
  Sex: Male
  Weight: 3.47 kg

DRUGS (16)
  1. REMICADE [Suspect]
     Indication: PSORIATIC ARTHROPATHY
     Route: 064
     Dates: start: 20091221
  2. REMICADE [Suspect]
     Indication: PSORIATIC ARTHROPATHY
     Route: 064
     Dates: start: 20090624
  3. REMICADE [Suspect]
     Indication: PSORIATIC ARTHROPATHY
     Route: 064
     Dates: start: 20090617
  4. REMICADE [Suspect]
     Indication: PSORIATIC ARTHROPATHY
     Route: 064
     Dates: start: 20100107
  5. REMICADE [Suspect]
     Indication: PSORIATIC ARTHROPATHY
     Route: 064
     Dates: start: 20100209, end: 20100209
  6. DICLOFENAC [Suspect]
     Indication: PSORIATIC ARTHROPATHY
     Route: 064
     Dates: start: 20091126, end: 20100105
  7. DOLORMIN [Suspect]
     Indication: MIGRAINE
     Dosage: 2 TABLETS ONLY, JUL/AUG-2009
     Route: 064
  8. PREDNISOLON [Suspect]
     Indication: PSORIATIC ARTHROPATHY
     Route: 064
     Dates: start: 20091126, end: 20100115
  9. PANTOZOL [Suspect]
     Indication: GASTRITIS PROPHYLAXIS
     Route: 064
     Dates: start: 20091126, end: 20100322
  10. HYDROCORTISON [Suspect]
     Indication: PSORIASIS
     Route: 064
     Dates: start: 20091119, end: 20091123
  11. BIFITERAL [Suspect]
     Indication: CONSTIPATION
     Route: 064
     Dates: start: 20091123, end: 20091130
  12. PARACETAMOL [Suspect]
     Route: 064
  13. PARACETAMOL [Suspect]
     Indication: PSORIATIC ARTHROPATHY
     Route: 064
  14. JURNISTA [Suspect]
     Indication: PSORIATIC ARTHROPATHY
     Route: 048
     Dates: start: 20091126, end: 20100115
  15. DIPIDOLOR [Suspect]
     Indication: PSORIATIC ARTHROPATHY
     Route: 048
  16. FOLSAURE [Concomitant]
     Indication: PROPHYLAXIS OF NEURAL TUBE DEFECT
     Route: 064

REACTIONS (6)
  - Developmental hip dysplasia [Unknown]
  - Haemangioma [Unknown]
  - Ureteric stenosis [Unknown]
  - Hydrocele [Recovered/Resolved]
  - Temperature regulation disorder [Unknown]
  - Foetal exposure during pregnancy [Recovered/Resolved]
